FAERS Safety Report 8328193-4 (Version None)
Quarter: 2012Q2

REPORT INFORMATION
  Report Type: 
  Country: None (occurrence: None)
  Receive Date: 20120502
  Receipt Date: 20120425
  Transmission Date: 20120825
  Serious: Yes (Other)
  Sender: FDA-Public Use
  Company Number: DE-PFIZER INC-2012102047

PATIENT

DRUGS (1)
  1. ZYVOX [Suspect]
     Indication: ABSCESS
     Dosage: 3X600 MG
     Route: 048

REACTIONS (1)
  - RENAL FAILURE [None]
